FAERS Safety Report 4560311-6 (Version None)
Quarter: 2005Q1

REPORT INFORMATION
  Report Type: 
  Country: None (occurrence: None)
  Receive Date: 20050125
  Receipt Date: 20041019
  Transmission Date: 20050727
  Serious: Yes (Death)
  Sender: FDA-Public Use
  Company Number: 200413245JP

PATIENT
  Age: 78 Year
  Sex: Female
  Weight: 34.8 kg

DRUGS (18)
  1. KETEK [Suspect]
     Indication: BRONCHITIS ACUTE
     Route: 048
     Dates: start: 20040928, end: 20041016
  2. NEUER [Concomitant]
     Dosage: DOSE: 2CAPSULES
     Route: 048
     Dates: start: 20040928, end: 20041016
  3. CLEANAL [Concomitant]
     Dosage: DOSE: 4TABLETS
     Route: 048
     Dates: start: 20040928, end: 20041009
  4. THEOLONG [Concomitant]
     Dosage: DOSE: 2TABLETS
     Route: 048
     Dates: start: 20040928, end: 20041009
  5. MUCOSOLVAN [Concomitant]
     Dosage: DOSE: 1CAPSULE
     Route: 048
     Dates: start: 20040928, end: 20041016
  6. ALESION [Concomitant]
     Dosage: DOSE: 1TABLET
     Route: 048
     Dates: start: 20040928, end: 20041009
  7. LINCOCIN [Concomitant]
     Route: 041
     Dates: start: 20041014, end: 20041016
  8. FOSMICIN [Concomitant]
     Route: 041
     Dates: start: 20041015, end: 20041015
  9. RISUMIC [Concomitant]
  10. DOPS [Concomitant]
     Dosage: DOSE: 2CAPSULES
  11. URSO 250 [Concomitant]
     Dosage: DOSE: 3TABLETS
  12. TAKEPRON [Concomitant]
     Indication: GASTRIC ULCER
  13. ITOROL [Concomitant]
     Indication: ANGINA PECTORIS
  14. MUCODYNE [Concomitant]
     Indication: BRONCHITIS CHRONIC
     Dosage: DOSE: 3TABLETS
  15. ASPIRIN [Concomitant]
     Indication: ANGINA PECTORIS
  16. CALTAN [Concomitant]
     Indication: DIALYSIS
     Dosage: DOSE: 8TABLETS
  17. DEPAS [Concomitant]
     Dosage: DOSE: 1TABLET
  18. ROCALTROL [Concomitant]
     Indication: OSTEOPOROSIS
     Dosage: DOSE: 2CAPSULES

REACTIONS (14)
  - ACIDOSIS [None]
  - ARTERIOSCLEROSIS [None]
  - CARDIAC FAILURE [None]
  - DEHYDRATION [None]
  - DEPRESSED LEVEL OF CONSCIOUSNESS [None]
  - DIARRHOEA [None]
  - HAEMODIALYSIS [None]
  - HEPATIC FAILURE [None]
  - HEPATIC FUNCTION ABNORMAL [None]
  - HYPOGLYCAEMIA [None]
  - ISCHAEMIC HEPATITIS [None]
  - NASOPHARYNGITIS [None]
  - SHOCK [None]
  - WHITE BLOOD CELL COUNT INCREASED [None]
